FAERS Safety Report 17204452 (Version 1)
Quarter: 2019Q4

REPORT INFORMATION
  Report Type: Spontaneous
  Country: FR (occurrence: FR)
  Receive Date: 20191226
  Receipt Date: 20191226
  Transmission Date: 20200122
  Serious: Yes (Other)
  Sender: FDA-Public Use
  Company Number: FR-JNJFOC-20191233760

PATIENT
  Age: 44 Year
  Sex: Female
  Weight: 102 kg

DRUGS (3)
  1. CYMBALTA [Concomitant]
     Active Substance: DULOXETINE HYDROCHLORIDE
     Route: 065
  2. SIMPONI [Suspect]
     Active Substance: GOLIMUMAB
     Indication: ANKYLOSING SPONDYLITIS
     Route: 058
  3. BIPRETERAX                         /01421201/ [Concomitant]
     Active Substance: INDAPAMIDE\PERINDOPRIL ERBUMINE
     Route: 065

REACTIONS (1)
  - Bronchitis [Recovering/Resolving]

NARRATIVE: CASE EVENT DATE: 2018
